FAERS Safety Report 16913910 (Version 1)
Quarter: 2019Q4

REPORT INFORMATION
  Report Type: Spontaneous
  Country: US (occurrence: US)
  Receive Date: 20191014
  Receipt Date: 20191014
  Transmission Date: 20200122
  Serious: No
  Sender: FDA-Public Use
  Company Number: US-PFIZER INC-2019432227

PATIENT
  Age: 61 Year

DRUGS (2)
  1. DILANTIN [Suspect]
     Active Substance: PHENYTOIN
     Dosage: 200 MG, ALTERNATE DAY (2 ON ONE DAY AND THEN 3 ON THE NEXT DAY)
     Route: 048
  2. DILANTIN [Suspect]
     Active Substance: PHENYTOIN
     Dosage: 300 MG, ALTERNATE DAY (2 ON ONE DAY AND THEN 3 ON THE NEXT DAY)
     Route: 048

REACTIONS (4)
  - Injury [Unknown]
  - Drug level increased [Unknown]
  - Fall [Unknown]
  - Balance disorder [Unknown]
